FAERS Safety Report 25943967 (Version 2)
Quarter: 2025Q4

REPORT INFORMATION
  Report Type: Spontaneous
  Country: EU (occurrence: EU)
  Receive Date: 20251021
  Receipt Date: 20251024
  Transmission Date: 20260117
  Serious: Yes (Death)
  Sender: NOVARTIS
  Company Number: EU-002147023-NVSC2025IT161959

PATIENT
  Age: 84 Year
  Sex: Male

DRUGS (1)
  1. PLUVICTO [Suspect]
     Active Substance: LUTETIUM LU-177 VIPIVOTIDE TETRAXETAN
     Indication: Hormone-refractory prostate cancer
     Dosage: 7.4 GBQ (II CYCLES AT A DOSE OF 7.4 GBQ)
     Route: 065
     Dates: start: 20250731, end: 20250911

REACTIONS (1)
  - Infection [Fatal]

NARRATIVE: CASE EVENT DATE: 20251007
